FAERS Safety Report 9056817 (Version 2)
Quarter: 2013Q1

REPORT INFORMATION
  Report Type: Spontaneous
  Country: IT (occurrence: IT)
  Receive Date: 20130201
  Receipt Date: 20130214
  Transmission Date: 20140127
  Serious: Yes (Other)
  Sender: FDA-Public Use
  Company Number: IT-PFIZER INC-2013037385

PATIENT
  Age: 88 Year
  Sex: Female

DRUGS (10)
  1. LYRICA [Suspect]
     Indication: PAIN IN EXTREMITY
     Dosage: 75 MG, DAILY
  2. FOLINA [Concomitant]
     Dosage: UNK
  3. TENORMIN [Concomitant]
     Dosage: UNK
  4. ONCO-CARBIDE [Concomitant]
     Indication: PLATELET COUNT ABNORMAL
     Dosage: UNK
  5. PEPTAZOL [Concomitant]
     Dosage: UNK
  6. ALLOPURINOL [Concomitant]
     Dosage: UNK
  7. GLUCOFAGE [Concomitant]
     Dosage: UNK
  8. NORVASC [Concomitant]
     Dosage: UNK
  9. CLOPIDOGREL [Concomitant]
     Dosage: UNK
  10. RANIBIZUMAB [Concomitant]
     Dosage: UNK
     Route: 021

REACTIONS (5)
  - Eye haemorrhage [Unknown]
  - Thrombosis [Unknown]
  - Gait disturbance [Unknown]
  - Pain in extremity [Unknown]
  - Dysstasia [Unknown]
